FAERS Safety Report 21543586 (Version 1)
Quarter: 2022Q4

REPORT INFORMATION
  Report Type: Report from Study
  Country: AU (occurrence: AU)
  Receive Date: 20221102
  Receipt Date: 20221102
  Transmission Date: 20230113
  Serious: Yes (Life-Threatening)
  Sender: FDA-Public Use
  Company Number: AU-JNJFOC-20221053692

PATIENT
  Age: 58 Year
  Sex: Female
  Weight: 86.2 kg

DRUGS (18)
  1. TECLISTAMAB [Suspect]
     Active Substance: TECLISTAMAB
     Indication: Plasma cell myeloma
     Route: 058
     Dates: start: 20210901, end: 20220719
  2. LENALIDOMIDE [Suspect]
     Active Substance: LENALIDOMIDE
     Indication: Plasma cell myeloma
     Route: 048
     Dates: start: 20210921, end: 20220720
  3. DARATUMUMAB [Suspect]
     Active Substance: DARATUMUMAB
     Indication: Plasma cell myeloma
     Route: 058
     Dates: start: 20210831, end: 20220705
  4. VITAMINS [Concomitant]
     Active Substance: VITAMINS
     Dates: start: 20190101
  5. VALACYCLOVIR HYDROCHLORIDE [Concomitant]
     Active Substance: VALACYCLOVIR HYDROCHLORIDE
     Indication: Prophylaxis
     Route: 048
     Dates: start: 20201001
  6. ERGOCALCIFEROL [Concomitant]
     Active Substance: ERGOCALCIFEROL
     Indication: Vitamin supplementation
     Dosage: 2000 (UNITS NOT PROVIDED)
     Route: 048
     Dates: start: 20201001
  7. CALCIUM CARBONATE PCH [Concomitant]
     Indication: Supplementation therapy
     Route: 048
     Dates: start: 20201001
  8. AMLODIPINE [Concomitant]
     Active Substance: AMLODIPINE BESYLATE
     Indication: Hypertension
     Route: 048
     Dates: start: 20210201
  9. INSULIN ASPART [Concomitant]
     Active Substance: INSULIN ASPART
     Indication: Hyperglycaemia
     Dosage: 34 (UNITS NOT PROVIDED)
     Route: 058
     Dates: start: 20210928
  10. INSULIN ASPART [Concomitant]
     Active Substance: INSULIN ASPART
     Dosage: 12-30
     Route: 058
     Dates: start: 20211025
  11. SODIUM BICARBONATE [Concomitant]
     Active Substance: SODIUM BICARBONATE
     Indication: Chronic kidney disease
     Route: 048
     Dates: start: 20210929
  12. IMMUNE GLOBULIN NOS [Concomitant]
     Active Substance: IMMUNE GLOBULIN NOS
     Indication: Hypogammaglobulinaemia
     Route: 042
     Dates: start: 20211125
  13. MAGNESIUM [Concomitant]
     Active Substance: MAGNESIUM
     Indication: Mineral supplementation
     Route: 048
     Dates: start: 20220131
  14. VENTOLIN [Concomitant]
     Active Substance: ALBUTEROL SULFATE
     Indication: Upper respiratory tract infection
     Route: 055
     Dates: start: 20220301
  15. ZOMETA [Concomitant]
     Active Substance: ZOLEDRONIC ACID
     Indication: Prophylaxis
     Route: 042
     Dates: start: 20220517
  16. BUDESONIDE\FORMOTEROL [Concomitant]
     Active Substance: BUDESONIDE\FORMOTEROL
     Indication: Productive cough
     Route: 055
     Dates: start: 20220607
  17. SULFAMETHOXAZOLE;TRIMIPRAMINE [Concomitant]
     Indication: Antifungal prophylaxis
     Route: 048
     Dates: start: 20220614
  18. PANTOPRAZOLE [Concomitant]
     Active Substance: PANTOPRAZOLE
     Indication: Gastritis prophylaxis
     Route: 048
     Dates: start: 20191001

REACTIONS (1)
  - Small cell lung cancer [Recovering/Resolving]

NARRATIVE: CASE EVENT DATE: 20221019
